FAERS Safety Report 23711609 (Version 1)
Quarter: 2024Q2

REPORT INFORMATION
  Report Type: Report from Study
  Country: NL (occurrence: NL)
  Receive Date: 20240405
  Receipt Date: 20240405
  Transmission Date: 20240715
  Serious: Yes (Death, Hospitalization)
  Sender: FDA-Public Use
  Company Number: None

PATIENT
  Age: 63 Year
  Sex: Male

DRUGS (5)
  1. DOCETAXEL [Suspect]
     Active Substance: DOCETAXEL\DOCETAXEL ANHYDROUS
     Indication: Non-small cell lung cancer stage IV
     Dosage: DAY 1 OF 21 DAY CYCLE
     Route: 042
     Dates: start: 20120914, end: 20120914
  2. INVESTIGATIONAL PRODUCT [Suspect]
     Active Substance: INVESTIGATIONAL PRODUCT
     Indication: Non-small cell lung cancer stage IV
     Dosage: DAY 1 OF 21 DAY CYCLE
     Route: 042
     Dates: start: 20120914, end: 20120914
  3. MORPHINE [Concomitant]
     Active Substance: MORPHINE
     Indication: Product used for unknown indication
     Route: 065
  4. METOPROLOL [Concomitant]
     Active Substance: METOPROLOL
     Indication: Product used for unknown indication
     Route: 065
  5. MOVICOLON [Concomitant]
     Active Substance: POLYETHYLENE GLYCOL 3350\POTASSIUM CHLORIDE\SODIUM BICARBONATE\SODIUM CHLORIDE
     Indication: Product used for unknown indication
     Route: 065

REACTIONS (3)
  - Pneumonia [Fatal]
  - Neutropenia [Recovered/Resolved]
  - Myalgia [Not Recovered/Not Resolved]

NARRATIVE: CASE EVENT DATE: 20120915
